FAERS Safety Report 11737934 (Version 1)
Quarter: 2015Q4

REPORT INFORMATION
  Report Type: Spontaneous
  Country: US (occurrence: US)
  Receive Date: 20151110
  Receipt Date: 20151110
  Transmission Date: 20160304
  Serious: No
  Sender: FDA-Public Use
  Company Number: US-ELI_LILLY_AND_COMPANY-US201207005173

PATIENT
  Age: 66 Year
  Sex: Female

DRUGS (1)
  1. FORTEO [Suspect]
     Active Substance: TERIPARATIDE
     Indication: OSTEOPOROSIS
     Dosage: 20 UG, QD
     Route: 065
     Dates: start: 201201, end: 20120709

REACTIONS (8)
  - Spinal pain [Unknown]
  - Skin hypertrophy [Unknown]
  - Burning sensation [Unknown]
  - Inflammation [Unknown]
  - Back pain [Unknown]
  - Feeling cold [Unknown]
  - Hyperhidrosis [Unknown]
  - Musculoskeletal chest pain [Unknown]

NARRATIVE: CASE EVENT DATE: 201207
